FAERS Safety Report 5806764-4 (Version None)
Quarter: 2008Q3

REPORT INFORMATION
  Report Type: 
  Country: None (occurrence: None)
  Receive Date: 20080709
  Receipt Date: 20080709
  Transmission Date: 20090109
  Serious: Yes (Other)
  Sender: FDA-Public Use
  Company Number: None

PATIENT
  Age: 67 Year
  Sex: Female

DRUGS (1)
  1. OXYTROL [Suspect]
     Indication: HYPERTONIC BLADDER
     Dosage: APPLY 1 PATCH EVERY 3 TO 4 DAYS

REACTIONS (3)
  - DISEASE RECURRENCE [None]
  - HYPERTONIC BLADDER [None]
  - PHARMACEUTICAL PRODUCT COMPLAINT [None]
